FAERS Safety Report 6020398-0 (Version None)
Quarter: 2008Q4

REPORT INFORMATION
  Report Type: 
  Country: None (occurrence: None)
  Receive Date: 20081226
  Receipt Date: 20081218
  Transmission Date: 20090506
  Serious: Yes (Other)
  Sender: FDA-Public Use
  Company Number: US-ABBOTT-08P-163-0493781-00

PATIENT
  Sex: Female
  Weight: 56.75 kg

DRUGS (3)
  1. HUMIRA [Suspect]
     Indication: RHEUMATOID ARTHRITIS
     Route: 058
     Dates: start: 20061201
  2. SULFASALAZINE [Concomitant]
     Indication: RHEUMATOID ARTHRITIS
     Dosage: UNSURE OF STRENGTH
     Route: 048
  3. ADVIL LIQUI-GELS [Concomitant]
     Indication: PAIN
     Route: 048

REACTIONS (3)
  - BENIGN BREAST NEOPLASM [None]
  - MAMMOGRAM ABNORMAL [None]
  - NODULE [None]
